FAERS Safety Report 9516894 (Version 2)
Quarter: 2013Q3

REPORT INFORMATION
  Report Type: Spontaneous
  Country: US (occurrence: US)
  Receive Date: 20130911
  Receipt Date: 20130923
  Transmission Date: 20140515
  Serious: Yes (Death, Hospitalization, Other)
  Sender: FDA-Public Use
  Company Number: US-BAXTER-2013BAX035551

PATIENT
  Age: 74 Year
  Sex: Male

DRUGS (1)
  1. DIANEAL LOW CALCIUM (ULTRABAG) [Suspect]
     Indication: PERITONEAL DIALYSIS
     Route: 033
     Dates: end: 20130910

REACTIONS (6)
  - Cardiac disorder [Fatal]
  - Cardiac failure [Fatal]
  - Pneumonia [Fatal]
  - Hip fracture [Fatal]
  - Fall [Recovering/Resolving]
  - Multimorbidity [Unknown]
